FAERS Safety Report 14544261 (Version 11)
Quarter: 2022Q2

REPORT INFORMATION
  Report Type: Report from Study
  Country: DE (occurrence: DE)
  Receive Date: 20180216
  Receipt Date: 20220601
  Transmission Date: 20220721
  Serious: Yes (Hospitalization, Other)
  Sender: FDA-Public Use
  Company Number: DE-BRISTOL-MYERS SQUIBB COMPANY-BMS-2017-121037

PATIENT
  Age: 68 Year
  Sex: Male
  Weight: 71 kg

DRUGS (20)
  1. NIVOLUMAB [Suspect]
     Active Substance: NIVOLUMAB
     Indication: Malignant melanoma
     Dosage: DOSE: 70
     Route: 065
     Dates: start: 20170814, end: 20170814
  2. NIVOLUMAB [Suspect]
     Active Substance: NIVOLUMAB
     Dosage: DOSE: 70
     Route: 065
     Dates: start: 20170904, end: 20170904
  3. IPILIMUMAB [Suspect]
     Active Substance: IPILIMUMAB
     Indication: Malignant melanoma
     Dosage: DOSE: 215
     Route: 065
     Dates: start: 20170814, end: 20170814
  4. IPILIMUMAB [Suspect]
     Active Substance: IPILIMUMAB
     Dosage: DOSE: 215
     Route: 065
     Dates: start: 20170904, end: 20170904
  5. DICLOFENAC [Concomitant]
     Active Substance: DICLOFENAC
     Indication: Back pain
     Dosage: 50 MG, UNK
     Route: 048
     Dates: start: 20170907, end: 20170913
  6. PANTOPRAZOLE [Concomitant]
     Active Substance: PANTOPRAZOLE
     Indication: Back pain
     Dosage: UNK, PRN
     Route: 048
     Dates: start: 20170908, end: 20170913
  7. RAMIPRIL [Concomitant]
     Active Substance: RAMIPRIL
     Indication: Hypertension
     Dosage: 2.5 MG, UNK
     Route: 048
  8. ASPIRIN [Concomitant]
     Active Substance: ASPIRIN
     Indication: Hypertension
     Dosage: 100 MG, UNK
     Route: 048
  9. ATORVASTATIN [Concomitant]
     Active Substance: ATORVASTATIN
     Indication: Hypertension
     Dosage: 20 MG, QD
     Route: 048
  10. MOVICOL [Concomitant]
     Active Substance: POLYETHYLENE GLYCOL 3350\POTASSIUM CHLORIDE\SODIUM BICARBONATE\SODIUM CHLORIDE
     Indication: Product used for unknown indication
     Dosage: 39.375 GRAM
     Route: 048
     Dates: start: 20171014, end: 20171014
  11. MOVICOL [Concomitant]
     Active Substance: POLYETHYLENE GLYCOL 3350\POTASSIUM CHLORIDE\SODIUM BICARBONATE\SODIUM CHLORIDE
     Dosage: 13.125 GRAM
     Route: 048
     Dates: start: 20171015
  12. METHYLPREDNISOLONE [Concomitant]
     Active Substance: METHYLPREDNISOLONE
     Indication: Product used for unknown indication
     Dosage: 72 MILLIGRAM, QD
     Route: 042
     Dates: start: 20171008, end: 20171012
  13. ADVANTAN MILK [Concomitant]
     Indication: Product used for unknown indication
     Dosage: UNK
     Route: 061
     Dates: start: 20180104, end: 20180122
  14. FINASTERIDE [Concomitant]
     Active Substance: FINASTERIDE
     Indication: Product used for unknown indication
     Dosage: 5 MILLIGRAM, QD
     Route: 048
     Dates: start: 202008
  15. TAMSULOSIN [Concomitant]
     Active Substance: TAMSULOSIN
     Indication: Product used for unknown indication
     Dosage: 0.4 MILLIGRAM, QD
     Route: 048
     Dates: start: 202008
  16. LEVOTHYROXINE [Concomitant]
     Active Substance: LEVOTHYROXINE
     Indication: Product used for unknown indication
     Dosage: 75 MICROGRAM, QD
     Route: 048
     Dates: start: 20200817
  17. CELLCEPT [Concomitant]
     Active Substance: MYCOPHENOLATE MOFETIL
     Indication: Product used for unknown indication
     Route: 065
  18. DIMENHYDRINATE [Concomitant]
     Active Substance: DIMENHYDRINATE
     Indication: Product used for unknown indication
     Route: 065
  19. CALCIUM CARBONATE\CHOLECALCIFEROL [Concomitant]
     Active Substance: CALCIUM CARBONATE\CHOLECALCIFEROL
     Indication: Product used for unknown indication
     Route: 065
  20. PREDNISOLONE [Concomitant]
     Active Substance: PREDNISOLONE
     Indication: Product used for unknown indication
     Route: 065

REACTIONS (14)
  - Autoimmune colitis [Recovered/Resolved]
  - Nausea [Unknown]
  - Hyponatraemia [Unknown]
  - Hypocalcaemia [Unknown]
  - General physical health deterioration [Unknown]
  - Device related sepsis [Unknown]
  - Urinary tract infection bacterial [Unknown]
  - Stomatococcal infection [Unknown]
  - Propionibacterium infection [Unknown]
  - Neisseria infection [Unknown]
  - Constipation [Unknown]
  - Streptococcal urinary tract infection [Unknown]
  - Stomatitis [Unknown]
  - Vomiting [Unknown]

NARRATIVE: CASE EVENT DATE: 20170916
